FAERS Safety Report 15852739 (Version 1)
Quarter: 2019Q1

REPORT INFORMATION
  Report Type: Spontaneous
  Country: CH (occurrence: CH)
  Receive Date: 20190122
  Receipt Date: 20190122
  Transmission Date: 20190417
  Serious: Yes (Other)
  Sender: FDA-Public Use
  Company Number: PHHY2019CH001764

PATIENT

DRUGS (2)
  1. ZOLEDRONAT OSTEO SANDOZ [Suspect]
     Active Substance: ZOLEDRONIC ACID ANHYDROUS
     Indication: OSTEOPOROSIS
     Dosage: 2.5 MG, (TOTAL)
     Route: 042
     Dates: start: 20180112, end: 20180112
  2. VITAMIN D [Concomitant]
     Active Substance: CHOLECALCIFEROL
     Indication: PRODUCT USED FOR UNKNOWN INDICATION
     Dosage: 1000 IU, QD (1-0-0)
     Route: 048

REACTIONS (2)
  - Herpes zoster [Recovered/Resolved]
  - Acute phase reaction [Recovered/Resolved]

NARRATIVE: CASE EVENT DATE: 20180112
